FAERS Safety Report 7510066-8 (Version None)
Quarter: 2011Q2

REPORT INFORMATION
  Report Type: 
  Country: None (occurrence: None)
  Receive Date: 20110527
  Receipt Date: 20110128
  Transmission Date: 20111010
  Serious: Yes (Hospitalization)
  Sender: FDA-Public Use
  Company Number: JP-BAYER-201011659BYL

PATIENT
  Age: 75 Year
  Sex: Female
  Weight: 48.8 kg

DRUGS (20)
  1. CANDESARTAN CILEXETIL [Concomitant]
     Dosage: SINCE BEFORE ADMINISTRATION
     Route: 048
  2. ADETPHOS [Concomitant]
     Dosage: SINCE BEFORE ADMINISTRATION
     Route: 048
  3. VESICARE [Concomitant]
     Dosage: SINCE BEFORE ADMINISTRATION
     Route: 048
     Dates: end: 20091021
  4. NEXAVAR [Suspect]
     Dosage: 200MG/DAY, 400MG/DAY
     Route: 048
     Dates: start: 20100104, end: 20100406
  5. COCARL [Suspect]
     Dosage: DAILY DOSE 600 MG
     Route: 048
     Dates: start: 20100607, end: 20100609
  6. SAIREI-TO [Concomitant]
     Dosage: SINCE BEFORE ADMINISTRATION
     Route: 048
  7. ITRACONAZOLE [Concomitant]
     Dosage: DAILY DOSE 100 MG
     Route: 048
     Dates: start: 20100531, end: 20100609
  8. NEXAVAR [Suspect]
     Dosage: 200 MG (DAILY DOSE), , ORAL
     Route: 048
     Dates: start: 20091106, end: 20100103
  9. DOGMATYL [Concomitant]
     Dosage: SINCE BEFORE ADMINISTRATION
     Route: 048
  10. NEXAVAR [Suspect]
     Dosage: 200 MG (DAILY DOSE), , ORAL
     Route: 048
     Dates: start: 20100407
  11. NEXAVAR [Suspect]
     Indication: RENAL CELL CARCINOMA
     Dosage: 800 MG (DAILY DOSE), , ORAL
     Route: 048
     Dates: start: 20090902, end: 20090904
  12. ASPIRIN [Concomitant]
     Dosage: SINCE BEFORE ADMINISTRATION
     Route: 048
  13. DEPAS [Concomitant]
     Dosage: SINCE BEFORE ADMINISTRATION
     Route: 048
  14. NEXAVAR [Suspect]
     Dosage: 400 MG (DAILY DOSE), , ORAL
     Route: 048
     Dates: start: 20090911, end: 20091106
  15. CONIEL [Concomitant]
     Dosage: SINCE BEFORE ADMINISTRATION
     Route: 048
  16. CEPHADOL [Concomitant]
     Dosage: SINCE BEFORE ADMINISTRATION
     Route: 048
  17. VESICARE [Concomitant]
     Dosage: 5 MG (DAILY DOSE), , ORAL
     Route: 048
     Dates: start: 20091106, end: 20100221
  18. VESICARE [Concomitant]
     Dosage: 10 MG (DAILY DOSE), , ORAL
     Route: 048
     Dates: start: 20100222
  19. ALLEGRA [Concomitant]
     Dosage: DAILY DOSE 2 DF
     Route: 048
     Dates: start: 20100608, end: 20100609
  20. LOXONIN [Concomitant]
     Dosage: DAILY DOSE 180 MG
     Route: 048
     Dates: start: 20100630, end: 20100801

REACTIONS (13)
  - TINEA PEDIS [None]
  - ABDOMINAL DISCOMFORT [None]
  - PAIN IN EXTREMITY [None]
  - MALAISE [None]
  - URTICARIA [None]
  - BLOOD AMYLASE INCREASED [None]
  - PALMAR-PLANTAR ERYTHRODYSAESTHESIA SYNDROME [None]
  - ALOPECIA [None]
  - GLOSSITIS [None]
  - GLOSSODYNIA [None]
  - ABDOMINAL PAIN UPPER [None]
  - FAECES HARD [None]
  - STOMATITIS [None]
